FAERS Safety Report 9365978 (Version 3)
Quarter: 2013Q4

REPORT INFORMATION
  Report Type: Spontaneous
  Country: US (occurrence: US)
  Receive Date: 20130625
  Receipt Date: 20131204
  Transmission Date: 20140711
  Serious: Yes (Hospitalization, Other)
  Sender: FDA-Public Use
  Company Number: US-ROCHE-1240677

PATIENT
  Age: 55 Year
  Sex: Female
  Weight: 62.2 kg

DRUGS (6)
  1. PEGASYS [Suspect]
     Indication: CHRONIC HEPATITIS C
     Route: 058
     Dates: start: 20130619
  2. PEGASYS [Suspect]
     Route: 065
  3. RIBAVIRIN [Suspect]
     Indication: CHRONIC HEPATITIS C
     Dosage: THERAPY TEMPORARILY DISCONTINUED FROM 30/JUL/2013 TO 07/AUG/2013 DUE TO ANEMIA.
     Route: 048
     Dates: start: 20130619
  4. RIBAVIRIN [Suspect]
     Route: 065
  5. INCIVEK [Suspect]
     Indication: CHRONIC HEPATITIS C
     Route: 065
     Dates: start: 20130619
  6. ZYRTEC [Concomitant]
     Route: 065

REACTIONS (6)
  - Anaemia [Unknown]
  - Tongue oedema [Unknown]
  - Hypoaesthesia oral [Recovered/Resolved]
  - Paraesthesia [Unknown]
  - Rash [Recovered/Resolved]
  - Pruritus [Recovered/Resolved]
